FAERS Safety Report 24713120 (Version 1)
Quarter: 2024Q4

REPORT INFORMATION
  Report Type: Spontaneous
  Country: US (occurrence: US)
  Receive Date: 20241209
  Receipt Date: 20241209
  Transmission Date: 20250115
  Serious: Yes (Other)
  Sender: JUBILANT
  Company Number: US-JUBILANT CADISTA PHARMACEUTICALS-2024JUB00098

PATIENT
  Age: 6 Year
  Sex: Female

DRUGS (2)
  1. LOSARTAN POTASSIUM [Suspect]
     Active Substance: LOSARTAN POTASSIUM
     Indication: Marfan^s syndrome
  2. ATENOLOL [Suspect]
     Active Substance: ATENOLOL
     Indication: Marfan^s syndrome

REACTIONS (1)
  - Aortic aneurysm [Unknown]
